FAERS Safety Report 25074031 (Version 1)
Quarter: 2025Q1

REPORT INFORMATION
  Report Type: Spontaneous
  Country: GB (occurrence: GB)
  Receive Date: 20250313
  Receipt Date: 20250313
  Transmission Date: 20250409
  Serious: Yes (Other)
  Sender: TAKEDA
  Company Number: GB-MHRA-34879485

PATIENT
  Age: 46 Year
  Sex: Female

DRUGS (4)
  1. ENTYVIO [Suspect]
     Active Substance: VEDOLIZUMAB
     Indication: Proctitis ulcerative
     Dosage: UNK UNK, Q2WEEKS
     Dates: start: 202409, end: 20250226
  2. ENTYVIO [Suspect]
     Active Substance: VEDOLIZUMAB
  3. ENTYVIO [Suspect]
     Active Substance: VEDOLIZUMAB
  4. ENTYVIO [Suspect]
     Active Substance: VEDOLIZUMAB

REACTIONS (10)
  - Haematochezia [Unknown]
  - Pruritus genital [Unknown]
  - Retinal migraine [Unknown]
  - Migraine [Unknown]
  - Anal pruritus [Unknown]
  - Lichen planus [Unknown]
  - Genital rash [Unknown]
  - Mucous stools [Unknown]
  - Rash [Unknown]
  - Pruritus [Unknown]

NARRATIVE: CASE EVENT DATE: 20241001
